FAERS Safety Report 5111610-0 (Version None)
Quarter: 2006Q3

REPORT INFORMATION
  Report Type: 
  Country: None (occurrence: None)
  Receive Date: 20060922
  Receipt Date: 20060913
  Transmission Date: 20061208
  Serious: Yes (Other)
  Sender: FDA-Public Use
  Company Number: PHBS2006SE13910

PATIENT
  Age: 76 Year

DRUGS (1)
  1. VOLTAREN [Suspect]
     Route: 065

REACTIONS (1)
  - PAROSMIA [None]
